FAERS Safety Report 4370558-X (Version None)
Quarter: 2004Q2

REPORT INFORMATION
  Report Type: 
  Country: None (occurrence: None)
  Receive Date: 20040528
  Receipt Date: 20040517
  Transmission Date: 20050107
  Serious: Yes (Hospitalization)
  Sender: FDA-Public Use
  Company Number: 2004213779US

PATIENT
  Age: 44 Year
  Sex: Female

DRUGS (1)
  1. HEPARIN SODIUM INJECTION [Suspect]
     Indication: THROMBOSIS PROPHYLAXIS
     Dosage: IV DRIP
     Route: 041

REACTIONS (4)
  - DIALYSIS [None]
  - RENAL ARTERY THROMBOSIS [None]
  - SHUNT THROMBOSIS [None]
  - THROMBOCYTOPENIA [None]
